FAERS Safety Report 23752036 (Version 1)
Quarter: 2024Q2

REPORT INFORMATION
  Report Type: Spontaneous
  Country: CN (occurrence: CN)
  Receive Date: 20240417
  Receipt Date: 20240417
  Transmission Date: 20240716
  Serious: Yes (Other)
  Sender: FDA-Public Use
  Company Number: CN-BoehringerIngelheim-2024-BI-020942

PATIENT
  Age: 70 Year
  Sex: Male
  Weight: 70 kg

DRUGS (4)
  1. ALTEPLASE [Suspect]
     Active Substance: ALTEPLASE
     Indication: Pulmonary embolism
     Dosage: FIRSTLY 10 MG IV BOLUS
     Route: 042
     Dates: start: 20240329, end: 20240329
  2. ALTEPLASE [Suspect]
     Active Substance: ALTEPLASE
     Dosage: 40 MG IV INFUSION 20 MG/H WITH MICRO-PUMP
     Route: 042
     Dates: start: 20240329, end: 20240329
  3. ENOXAPARIN SODIUM [Concomitant]
     Active Substance: ENOXAPARIN SODIUM
     Indication: Pulmonary embolism
     Route: 058
     Dates: start: 20240329, end: 20240407
  4. PENTOXIFYLLINE [Concomitant]
     Active Substance: PENTOXIFYLLINE
     Indication: Deep vein thrombosis
     Route: 042
     Dates: start: 20240329, end: 20240330

REACTIONS (3)
  - Ecchymosis [Recovering/Resolving]
  - Haemoglobin decreased [Recovering/Resolving]
  - Peripheral swelling [Recovering/Resolving]

NARRATIVE: CASE EVENT DATE: 20240330
